FAERS Safety Report 4760571-2 (Version None)
Quarter: 2005Q3

REPORT INFORMATION
  Report Type: 
  Country: None (occurrence: None)
  Receive Date: 20050826
  Receipt Date: 20041208
  Transmission Date: 20060218
  Serious: Yes (Death)
  Sender: FDA-Public Use
  Company Number: USA-2004-0017960

PATIENT
  Age: 20 Year
  Sex: Female
  Weight: 123.4 kg

DRUGS (8)
  1. OXYCODONE HCL [Suspect]
  2. MORPHINE SULFATE [Suspect]
  3. DIAZEPAM [Suspect]
  4. HEROIN (DIAMORPHINE) [Suspect]
  5. TOPIRAMATE [Suspect]
  6. SERTRALINE HCL [Suspect]
  7. CODEINE SUL TAB [Suspect]
  8. AMITRIPTYLINE HCL [Suspect]

REACTIONS (2)
  - MULTIPLE DRUG OVERDOSE [None]
  - POLYSUBSTANCE ABUSE [None]
